FAERS Safety Report 16415998 (Version 5)
Quarter: 2020Q1

REPORT INFORMATION
  Report Type: Spontaneous
  Country: US (occurrence: US)
  Receive Date: 20190611
  Receipt Date: 20200331
  Transmission Date: 20200409
  Serious: Yes (Other)
  Sender: FDA-Public Use
  Company Number: US-SA-2019SA158693

PATIENT
  Age: 65 Year
  Sex: Female

DRUGS (2)
  1. KEVZARA [Suspect]
     Active Substance: SARILUMAB
     Indication: RHEUMATOID ARTHRITIS
     Dosage: 200 MG, QOW
     Route: 058
     Dates: start: 201904
  2. KEVZARA [Suspect]
     Active Substance: SARILUMAB
     Dosage: 200 MG, QOW
     Route: 058

REACTIONS (10)
  - Joint swelling [Unknown]
  - Nasopharyngitis [Unknown]
  - Back pain [Unknown]
  - Hip fracture [Unknown]
  - Ligament sprain [Unknown]
  - Chest pain [Unknown]
  - Product dose omission [Unknown]
  - Gait disturbance [Unknown]
  - Sinusitis [Unknown]
  - Fall [Unknown]

NARRATIVE: CASE EVENT DATE: 2019
